FAERS Safety Report 16850538 (Version 1)
Quarter: 2019Q3

REPORT INFORMATION
  Report Type: Spontaneous
  Country: US (occurrence: US)
  Receive Date: 20190925
  Receipt Date: 20190925
  Transmission Date: 20191005
  Serious: No
  Sender: FDA-Public Use
  Company Number: US-UPSHER-SMITH LABORATORIES, LLC-2018USL00645

PATIENT
  Sex: Male
  Weight: 104.31 kg

DRUGS (3)
  1. BACLOFEN. [Suspect]
     Active Substance: BACLOFEN
     Dosage: 20 MG, 4X/DAY
     Route: 048
     Dates: end: 2018
  2. BACLOFEN. [Suspect]
     Active Substance: BACLOFEN
     Indication: MUSCLE SPASTICITY
     Dosage: 40 MG, 3X/DAY
     Route: 048
     Dates: start: 2018
  3. BETASERON [Concomitant]
     Active Substance: INTERFERON BETA-1B
     Dosage: 1 DOSAGE UNITS, EVERY 48 HOURS
     Route: 058

REACTIONS (1)
  - Drug ineffective [Not Recovered/Not Resolved]

NARRATIVE: CASE EVENT DATE: 2018
